FAERS Safety Report 4855064-8 (Version None)
Quarter: 2005Q4

REPORT INFORMATION
  Report Type: 
  Country: None (occurrence: None)
  Receive Date: 20051215
  Receipt Date: 20051205
  Transmission Date: 20060501
  Serious: Yes (Death, Hospitalization)
  Sender: FDA-Public Use
  Company Number: US-ABBOTT-05P-163-0318683-00

PATIENT
  Sex: Female

DRUGS (1)
  1. HUMIRA [Suspect]
     Indication: RHEUMATOID ARTHRITIS
     Dosage: -
     Route: 058
     Dates: start: 20030101

REACTIONS (3)
  - FALL [None]
  - OPEN FRACTURE [None]
  - STAPHYLOCOCCAL INFECTION [None]
